FAERS Safety Report 20623773 (Version 2)
Quarter: 2022Q1

REPORT INFORMATION
  Report Type: Spontaneous
  Country: US (occurrence: US)
  Receive Date: 20220322
  Receipt Date: 20220325
  Transmission Date: 20220423
  Serious: Yes (Hospitalization, Other)
  Sender: FDA-Public Use
  Company Number: US-009507513-2203USA006292

PATIENT
  Age: 73 Year
  Sex: Male

DRUGS (2)
  1. TICE BCG [Suspect]
     Active Substance: BACILLUS CALMETTE-GUERIN SUBSTRAIN TICE LIVE ANTIGEN
     Indication: Bladder cancer stage 0, with cancer in situ
     Dosage: UNK
     Route: 043
  2. TICE BCG [Suspect]
     Active Substance: BACILLUS CALMETTE-GUERIN SUBSTRAIN TICE LIVE ANTIGEN
     Dosage: UNK
     Route: 043

REACTIONS (3)
  - Aortic pseudoaneurysm [Recovering/Resolving]
  - Disseminated Bacillus Calmette-Guerin infection [Recovering/Resolving]
  - Abscess [Recovering/Resolving]
